FAERS Safety Report 9908751 (Version 2)
Quarter: 2014Q1

REPORT INFORMATION
  Report Type: Spontaneous
  Country: US (occurrence: US)
  Receive Date: 20140219
  Receipt Date: 20140221
  Transmission Date: 20141002
  Serious: Yes (Other)
  Sender: FDA-Public Use
  Company Number: US-PFIZER INC-2014043752

PATIENT
  Age: 72 Year
  Sex: Female
  Weight: 72.56 kg

DRUGS (10)
  1. SUTENT [Suspect]
     Indication: GASTRIC CANCER
     Dosage: 50 MG, 1X/DAY
     Route: 048
     Dates: start: 20140117, end: 20140214
  2. ASPIRIN [Concomitant]
     Dosage: UNK
  3. TRIAMTERENE [Concomitant]
     Dosage: UNK
  4. LEVOTHYROXINE [Concomitant]
     Dosage: UNK
  5. PRAVASTATIN [Concomitant]
     Dosage: UNK
  6. MECLIZINE [Concomitant]
     Dosage: UNK
  7. METOPROLOL [Concomitant]
     Dosage: UNK
  8. TYLENOL [Concomitant]
     Dosage: UNK
  9. IBUPROFEN [Concomitant]
     Dosage: UNK
  10. IMODIUM A-D [Concomitant]
     Dosage: UNK

REACTIONS (11)
  - Fatigue [Unknown]
  - Asthenia [Unknown]
  - Dyspnoea [Unknown]
  - Yellow skin [Unknown]
  - Abdominal discomfort [Unknown]
  - Diarrhoea [Unknown]
  - Flatulence [Unknown]
  - Nausea [Unknown]
  - Vomiting [Unknown]
  - Lip pain [Unknown]
  - Oral pain [Unknown]
